FAERS Safety Report 6538814-4 (Version None)
Quarter: 2010Q1

REPORT INFORMATION
  Report Type: 
  Country: None (occurrence: None)
  Receive Date: 20100114
  Receipt Date: 20100114
  Transmission Date: 20100710
  Serious: Yes (Hospitalization)
  Sender: FDA-Public Use
  Company Number: None

PATIENT
  Sex: Female
  Weight: 51 kg

DRUGS (4)
  1. MEMANTINE HCL [Suspect]
     Dosage: 110 MG
  2. ALENDRONATE SODIUM [Concomitant]
  3. LORAZEPAM [Concomitant]
  4. METORPOLOL [Concomitant]

REACTIONS (8)
  - BLOOD UREA INCREASED [None]
  - DECREASED APPETITE [None]
  - DEHYDRATION [None]
  - DIZZINESS [None]
  - FATIGUE [None]
  - HAEMOGLOBIN DECREASED [None]
  - NAUSEA [None]
  - ORTHOSTATIC HYPOTENSION [None]
